FAERS Safety Report 11088550 (Version 2)
Quarter: 2015Q2

REPORT INFORMATION
  Report Type: Spontaneous
  Country: US (occurrence: US)
  Receive Date: 20150504
  Receipt Date: 20150605
  Transmission Date: 20150821
  Serious: No
  Sender: FDA-Public Use
  Company Number: US-PFIZER INC-2015148312

PATIENT
  Age: 68 Year
  Sex: Male

DRUGS (2)
  1. SUTENT [Suspect]
     Active Substance: SUNITINIB MALATE
     Indication: METASTATIC RENAL CELL CARCINOMA
     Dosage: 50 MG, CYCLIC (DAILY 4 WEEKS ON AND 2 WEEKS OFF)
     Dates: start: 20150406
  2. AMLODIPINE [Concomitant]
     Active Substance: AMLODIPINE BESYLATE
     Dosage: UNK

REACTIONS (10)
  - Nasal disorder [Unknown]
  - Pain in extremity [Unknown]
  - Dyspepsia [Unknown]
  - Abdominal pain upper [Unknown]
  - Feeling abnormal [Unknown]
  - Hypertension [Unknown]
  - Diarrhoea [Unknown]
  - Nasal discomfort [Unknown]
  - Blister [Unknown]
  - Dysgeusia [Unknown]
